FAERS Safety Report 5072945-3 (Version None)
Quarter: 2006Q3

REPORT INFORMATION
  Report Type: 
  Country: None (occurrence: None)
  Receive Date: 20060802
  Receipt Date: 20060718
  Transmission Date: 20061208
  Serious: Yes (Hospitalization)
  Sender: FDA-Public Use
  Company Number: CIP06001604

PATIENT
  Age: 11 Month
  Sex: Male
  Weight: 8 kg

DRUGS (9)
  1. DANTRIUM [Suspect]
     Indication: CEREBRAL PALSY
     Dosage: ORAL
     Route: 048
     Dates: start: 20060630, end: 20060702
  2. NAUZELIN (DOMPERIDONE) [Concomitant]
  3. TRICLORYL (TRICLOFOS SODIUM) [Concomitant]
  4. LAC B (LACTOBACILLUS BIFIDUS, LYOPHILIZED) [Concomitant]
  5. SOLDEM 3A (SODIUM LACTATE, SODIUM CHLORIDE, POTASSIUM CHLORIDE, CARBOH [Concomitant]
  6. ESCRE (CHLORAL HYDRATE) [Concomitant]
  7. MUCODYNE (CARBOCISTEINE) [Concomitant]
  8. HOKUNALIN (TULOBUTEROL HYDROCHLORIDE) [Concomitant]
  9. FERROMIA (FERROUS CITRATE) [Concomitant]

REACTIONS (10)
  - ANTITHROMBIN III DECREASED [None]
  - FLUID INTAKE REDUCED [None]
  - HEPATIC FUNCTION ABNORMAL [None]
  - HYPOKALAEMIA [None]
  - ORAL INTAKE REDUCED [None]
  - PYREXIA [None]
  - RENAL IMPAIRMENT [None]
  - RHABDOMYOLYSIS [None]
  - VIITH NERVE PARALYSIS [None]
  - VIRAL INFECTION [None]
